FAERS Safety Report 5796085-0 (Version None)
Quarter: 2008Q2

REPORT INFORMATION
  Report Type: 
  Country: None (occurrence: None)
  Receive Date: 20080626
  Receipt Date: 20080618
  Transmission Date: 20081010
  Serious: Yes (Other)
  Sender: FDA-Public Use
  Company Number: 2008SP012153

PATIENT
  Age: 25 Year
  Sex: Female

DRUGS (3)
  1. CELESTONE SOLUSPAN [Suspect]
     Indication: ARTHRALGIA
     Dates: start: 20080618, end: 20080618
  2. LIDOCAINE [Suspect]
     Indication: ARTHRALGIA
     Dates: start: 20080618, end: 20080618
  3. MARCAINE [Suspect]
     Indication: ARTHRALGIA
     Dates: start: 20060618, end: 20080618

REACTIONS (5)
  - DIZZINESS [None]
  - LOSS OF CONSCIOUSNESS [None]
  - NECK INJURY [None]
  - PHARMACEUTICAL PRODUCT COMPLAINT [None]
  - SYNCOPE [None]
